FAERS Safety Report 15436125 (Version 1)
Quarter: 2018Q3

REPORT INFORMATION
  Report Type: Spontaneous
  Country: US (occurrence: US)
  Receive Date: 20180927
  Receipt Date: 20180927
  Transmission Date: 20181010
  Serious: Yes (Other)
  Sender: FDA-Public Use
  Company Number: US-ASTRAZENECA-2018SF20935

PATIENT
  Age: 242 Month
  Sex: Female
  Weight: 59 kg

DRUGS (1)
  1. FASENRA [Suspect]
     Active Substance: BENRALIZUMAB
     Dosage: 30 MG, ONCE EVERY 4 WEEKS FOR THE FIRST 3 DOSES AND THEN EVERY 8 WEEKS AFTER
     Route: 058
     Dates: start: 201801

REACTIONS (7)
  - Gastrointestinal motility disorder [Unknown]
  - Dysphagia [Not Recovered/Not Resolved]
  - Oesophageal motility disorder [Unknown]
  - Eosinophil count increased [Unknown]
  - Confusional state [Unknown]
  - Muscle disorder [Unknown]
  - Eosinophilic oesophagitis [Unknown]

NARRATIVE: CASE EVENT DATE: 201803
